FAERS Safety Report 9752329 (Version 1)
Quarter: 2013Q4

REPORT INFORMATION
  Report Type: Spontaneous
  Country: FR (occurrence: FR)
  Receive Date: 20131213
  Receipt Date: 20131213
  Transmission Date: 20140711
  Serious: Yes (Hospitalization)
  Sender: FDA-Public Use
  Company Number: FR-ROXANE LABORATORIES, INC.-2013-RO-01930RO

PATIENT
  Age: 84 Year
  Sex: Female

DRUGS (6)
  1. LEVETIRACETAM [Suspect]
     Indication: EPILEPSY
     Dosage: 1000 MG
  2. LEVETIRACETAM [Suspect]
     Dosage: 1250 MG
  3. VALPROATE [Suspect]
     Indication: EPILEPSY
     Dosage: 1000 MG
  4. LAMOTRIGINE [Suspect]
     Indication: EPILEPSY
     Dosage: 100 MG
  5. LOPRAZOLAM [Concomitant]
     Dosage: 1 MG
  6. FUROSEMIDE [Concomitant]
     Dosage: 20 MG

REACTIONS (1)
  - Metabolic encephalopathy [Recovered/Resolved]
